FAERS Safety Report 9424303 (Version 1)
Quarter: 2013Q3

REPORT INFORMATION
  Report Type: Spontaneous
  Country: JP (occurrence: None)
  Receive Date: 20130724
  Receipt Date: 20130724
  Transmission Date: 20140515
  Serious: Yes (Hospitalization)
  Sender: FDA-Public Use
  Company Number: SYM-2013-06896

PATIENT
  Age: 68 Year
  Sex: Female

DRUGS (10)
  1. FLUOROURACIL (FLUOROURACIL) (FLUOROURACIL) [Suspect]
     Indication: INVASIVE DUCTAL BREAST CARCINOMA
     Dosage: EVERY CYCLE
  2. EPIRUBICIN [Suspect]
     Indication: INVASIVE DUCTAL BREAST CARCINOMA
     Dosage: EVERY CYCLE
  3. CYCLOPHOSPHAMIDE (CYCLOPHOSPHAMIDE) [Suspect]
     Indication: INVASIVE DUCTAL BREAST CARCINOMA
     Dosage: EVERY CYCLE
  4. TAXOTERE [Suspect]
     Indication: INVASIVE DUCTAL BREAST CARCINOMA
     Dosage: (NOT OTHERWISE SPECIFIED)
     Route: 042
     Dates: start: 20110905
  5. METHOTREXATE [Suspect]
     Indication: METASTASES TO MENINGES
     Route: 024
  6. METHOTREXATE [Suspect]
     Indication: BRAIN NEOPLASM
     Route: 024
  7. DEXAMETHASONE [Suspect]
     Indication: METASTASES TO MENINGES
     Route: 024
  8. DEXAMETHASONE [Suspect]
     Indication: BRAIN NEOPLASM
     Route: 024
  9. ETHANOL (ETHANOL)(ETHANOL) [Concomitant]
  10. THERAPEUTIC RADIOPHARMACEUTICALS(THERAPEUTIC RADIOPHARMACEUTICALS) [Concomitant]

REACTIONS (2)
  - Drug eruption [None]
  - Colitis [None]
